FAERS Safety Report 10960588 (Version 2)
Quarter: 2015Q4

REPORT INFORMATION
  Report Type: Spontaneous
  Country: US (occurrence: US)
  Receive Date: 20150327
  Receipt Date: 20151026
  Transmission Date: 20160304
  Serious: Yes (Other)
  Sender: FDA-Public Use
  Company Number: US-BRISTOL-MYERS SQUIBB COMPANY-BMS-2015-017338

PATIENT

DRUGS (1)
  1. ELIQUIS [Suspect]
     Active Substance: APIXABAN
     Indication: PRODUCT USED FOR UNKNOWN INDICATION
     Dosage: UNK
     Route: 065
     Dates: start: 20150212, end: 20150214

REACTIONS (9)
  - Listless [Unknown]
  - Nervous system disorder [Unknown]
  - Pruritus [Unknown]
  - Memory impairment [Unknown]
  - Tachycardia [Unknown]
  - Chest discomfort [Unknown]
  - Hypertension [Unknown]
  - Fatigue [Unknown]
  - Gait disturbance [Unknown]
